FAERS Safety Report 7221558-3 (Version None)
Quarter: 2011Q1

REPORT INFORMATION
  Report Type: 
  Country: None (occurrence: None)
  Receive Date: 20110112
  Receipt Date: 20110104
  Transmission Date: 20110831
  Serious: Yes (Hospitalization, Other)
  Sender: FDA-Public Use
  Company Number: PHMT2006CA01168

PATIENT
  Sex: Female

DRUGS (10)
  1. ALTACE [Concomitant]
  2. CHEMOTHERAPEUTICS,OTHER [Concomitant]
  3. ZYPREXA [Concomitant]
  4. SIMVASTATIN [Concomitant]
  5. SANDOSTATIN LAR [Suspect]
     Dosage: 30 MG, BIW
     Route: 030
  6. 5-FU [Concomitant]
     Dosage: CONTINUOUS VIA CADD PUMP
  7. COUMADIN [Concomitant]
  8. PAXIL [Concomitant]
  9. SANDOSTATIN LAR [Suspect]
     Indication: GLUCAGONOMA
     Dosage: 30 MG, EVERY 4 WEEKS
     Route: 030
     Dates: start: 20030120
  10. INSULIN [Concomitant]

REACTIONS (17)
  - PLATELET COUNT DECREASED [None]
  - WHITE BLOOD CELL COUNT DECREASED [None]
  - LYMPHOCYTE PERCENTAGE DECREASED [None]
  - ABDOMINAL DISCOMFORT [None]
  - NEUTROPHIL COUNT DECREASED [None]
  - HAEMOGLOBIN DECREASED [None]
  - CHEST PAIN [None]
  - PANCREATIC CARCINOMA [None]
  - DYSPNOEA [None]
  - BLOOD GLUCOSE FLUCTUATION [None]
  - NASOPHARYNGITIS [None]
  - PANCREATIC DISORDER [None]
  - PRURITUS GENERALISED [None]
  - BLOOD PRESSURE DECREASED [None]
  - NEOPLASM MALIGNANT [None]
  - DIZZINESS [None]
  - HYPOGLYCAEMIA [None]
